FAERS Safety Report 4909159-0 (Version None)
Quarter: 2006Q1

REPORT INFORMATION
  Report Type: 
  Country: None (occurrence: None)
  Receive Date: 20060208
  Receipt Date: 20060203
  Transmission Date: 20060701
  Serious: Yes (Death, Disabling, Other)
  Sender: FDA-Public Use
  Company Number: USA-2006-0023445

PATIENT
  Sex: Male

DRUGS (1)
  1. OXYCONTIN [Suspect]
     Indication: DRUG USE FOR UNKNOWN INDICATION

REACTIONS (7)
  - ANHEDONIA [None]
  - DEFORMITY [None]
  - DRUG DEPENDENCE [None]
  - DRUG TOXICITY [None]
  - EMOTIONAL DISTRESS [None]
  - FEAR [None]
  - INJURY [None]
